FAERS Safety Report 6054198-2 (Version None)
Quarter: 2009Q1

REPORT INFORMATION
  Report Type: 
  Country: None (occurrence: None)
  Receive Date: 20090127
  Receipt Date: 20090120
  Transmission Date: 20090719
  Serious: Yes (Death, Congenital Anomaly)
  Sender: FDA-Public Use
  Company Number: GB-ELI_LILLY_AND_COMPANY-GB200901003105

PATIENT

DRUGS (3)
  1. BYETTA [Suspect]
     Dosage: 10 UG, 2/D
     Route: 064
     Dates: start: 20070626, end: 20080213
  2. AMOXICILLIN + CLAVULANATE POTASSIUM [Concomitant]
     Dosage: 1 D/F, 3/D
     Route: 064
     Dates: start: 20080422, end: 20080506
  3. SALBUTAMOL [Concomitant]
     Dosage: 2 D/F, AS NEEDED
     Route: 064
     Dates: start: 20080320

REACTIONS (3)
  - DRUG EXPOSURE DURING PREGNANCY [None]
  - MULTIPLE CONGENITAL ABNORMALITIES [None]
  - STILLBIRTH [None]
